FAERS Safety Report 7347906-1 (Version None)
Quarter: 2011Q1

REPORT INFORMATION
  Report Type: 
  Country: None (occurrence: None)
  Receive Date: 20110302
  Receipt Date: 20110216
  Transmission Date: 20110831
  Serious: Yes (Other)
  Sender: FDA-Public Use
  Company Number: 2011SP007868

PATIENT
  Age: 63 Year
  Sex: Female
  Weight: 58 kg

DRUGS (8)
  1. HYPROMELLOSE [Concomitant]
  2. MOMETASONE FUROATE [Suspect]
     Indication: PRODUCT USED FOR UNKNOWN INDICATION
     Dosage: NAS
     Dates: start: 20101201, end: 20110101
  3. DOTHIEPIN HYDROCHLORIDE [Concomitant]
  4. NARATRIPTAN [Concomitant]
  5. ROSUVASTATIN [Concomitant]
  6. MELOXICAM [Concomitant]
  7. HYDROCHLORIDE [Concomitant]
  8. PERINDOPRIL ERBUMINE [Concomitant]

REACTIONS (1)
  - BLOOD PRESSURE INCREASED [None]
